FAERS Safety Report 7653856-3 (Version None)
Quarter: 2011Q3

REPORT INFORMATION
  Report Type: 
  Country: None (occurrence: None)
  Receive Date: 20110803
  Receipt Date: 20110729
  Transmission Date: 20111222
  Serious: Yes (Other)
  Sender: FDA-Public Use
  Company Number: US-BRISTOL-MYERS SQUIBB COMPANY-15890072

PATIENT
  Age: 83 Year
  Sex: Female
  Weight: 45 kg

DRUGS (7)
  1. AMLODIPINE BESYLATE+BENAZEPRIL HCL [Concomitant]
  2. IPILIMUMAB [Suspect]
     Indication: MALIGNANT MELANOMA
     Dosage: LAST ADMINISTERED DATE: 03-JUN 10MG/KG IV OVER 90 MIN ON DAY 1 Q 12 WEEKS 21D CYCLE 1-4
     Route: 042
     Dates: start: 20110513
  3. SENOKOT [Concomitant]
  4. LORTAB [Concomitant]
  5. PROCHLORPERAZINE [Concomitant]
  6. MORPHINE [Concomitant]
  7. GM-CSF [Suspect]
     Indication: MALIGNANT MELANOMA
     Dosage: LAST DOSE ON 16JUN2011.CYCLE21DAYS INDUCTION THERAPY CYCLES1-4;250MCG
     Route: 058
     Dates: start: 20110513

REACTIONS (1)
  - NEUTROPHIL COUNT DECREASED [None]
